FAERS Safety Report 7958724-5 (Version None)
Quarter: 2011Q4

REPORT INFORMATION
  Report Type: 
  Country: None (occurrence: None)
  Receive Date: 20111206
  Receipt Date: 20110718
  Transmission Date: 20120403
  Serious: Yes (Other)
  Sender: FDA-Public Use
  Company Number: US-BAYER-2011-063280

PATIENT
  Sex: Female

DRUGS (3)
  1. DROSPIRENONE AND ETHINYL ESTRADIOL [Suspect]
     Dosage: UNK
     Dates: start: 20081126
  2. YASMIN [Suspect]
     Dosage: UNK
     Dates: start: 20081126
  3. YAZ [Suspect]
     Dosage: UNK
     Dates: start: 20081126

REACTIONS (6)
  - ANXIETY [None]
  - INJURY [None]
  - DEEP VEIN THROMBOSIS [None]
  - GALLBLADDER INJURY [None]
  - PAIN [None]
  - EMOTIONAL DISTRESS [None]
